FAERS Safety Report 15574971 (Version 1)
Quarter: 2018Q4

REPORT INFORMATION
  Report Type: Spontaneous
  Country: CA (occurrence: CA)
  Receive Date: 20181101
  Receipt Date: 20181101
  Transmission Date: 20190205
  Serious: Yes (Other)
  Sender: FDA-Public Use
  Company Number: CA-ASTRAZENECA-2018SF42952

PATIENT
  Sex: Female

DRUGS (2)
  1. ALVESCO [Suspect]
     Active Substance: CICLESONIDE
     Indication: ASTHMA
     Dosage: SWITCH FROM ALVESCO 200MCG TO ALVESCO 100MCG DUE TO BACK ORDER STATUS FOR 200MCG DEVICE.
     Route: 055
  2. ALVESCO [Suspect]
     Active Substance: CICLESONIDE
     Indication: ASTHMA
     Route: 055

REACTIONS (1)
  - Osteoporosis [Unknown]
